FAERS Safety Report 15694426 (Version 1)
Quarter: 2018Q4

REPORT INFORMATION
  Report Type: Spontaneous
  Country: US (occurrence: US)
  Receive Date: 20181206
  Receipt Date: 20181206
  Transmission Date: 20190205
  Serious: Yes (Other)
  Sender: FDA-Public Use
  Company Number: US-SUNOVION-2018SUN004682

PATIENT
  Sex: Female

DRUGS (1)
  1. LATUDA [Suspect]
     Active Substance: LURASIDONE HYDROCHLORIDE
     Dosage: UNK
     Route: 048

REACTIONS (7)
  - Mood swings [Not Recovered/Not Resolved]
  - Suicidal ideation [Unknown]
  - Borderline personality disorder [Not Recovered/Not Resolved]
  - Screaming [Not Recovered/Not Resolved]
  - Malaise [Not Recovered/Not Resolved]
  - Crying [Unknown]
  - Feeling abnormal [Not Recovered/Not Resolved]
